FAERS Safety Report 25601354 (Version 1)
Quarter: 2025Q3

REPORT INFORMATION
  Report Type: Report from Study
  Country: CA (occurrence: CA)
  Receive Date: 20250724
  Receipt Date: 20250724
  Transmission Date: 20251020
  Serious: Yes (Other)
  Sender: CELLTRION
  Company Number: CA-CELLTRION INC.-2025CA024244

PATIENT

DRUGS (15)
  1. BEVACIZUMAB [Suspect]
     Active Substance: BEVACIZUMAB
     Indication: Hereditary haemorrhagic telangiectasia
     Dosage: 540 MILLIGRAM, 1 EVERY 2 WEEKS
     Route: 042
  2. ACETAMINOPHEN [Concomitant]
     Active Substance: ACETAMINOPHEN
  3. ADVAIR HFA [Concomitant]
     Active Substance: FLUTICASONE PROPIONATE\SALMETEROL XINAFOATE
  4. BRIMONIDINE [Concomitant]
     Active Substance: BRIMONIDINE TARTRATE
  5. BRINZOLAMIDE [Concomitant]
     Active Substance: BRINZOLAMIDE
  6. FOLIC ACID [Concomitant]
     Active Substance: FOLIC ACID
  7. LANSOPRAZOLE [Concomitant]
     Active Substance: LANSOPRAZOLE
  8. LASIX [Concomitant]
     Active Substance: FUROSEMIDE
  9. LOSEC [Concomitant]
     Active Substance: OMEPRAZOLE
  10. METHOTREXATE [Concomitant]
     Active Substance: METHOTREXATE
  11. NITROGLYCERIN [Concomitant]
     Active Substance: NITROGLYCERIN
  12. PERINDOPRIL [Concomitant]
     Active Substance: PERINDOPRIL
  13. SPIRONOLACTONE [Concomitant]
     Active Substance: SPIRONOLACTONE
  14. TRANEXAMIC ACID [Concomitant]
     Active Substance: TRANEXAMIC ACID
  15. VENTOLIN [Concomitant]
     Active Substance: ALBUTEROL SULFATE

REACTIONS (2)
  - Cataract [Unknown]
  - Intentional product use issue [Unknown]
